FAERS Safety Report 23809251 (Version 1)
Quarter: 2024Q2

REPORT INFORMATION
  Report Type: Spontaneous
  Country: CA (occurrence: None)
  Receive Date: 20240502
  Receipt Date: 20240502
  Transmission Date: 20240716
  Serious: Yes (Other)
  Sender: FDA-Public Use
  Company Number: 2024A099916

PATIENT
  Age: 54 Year
  Sex: Female

DRUGS (2)
  1. SYMBICORT [Suspect]
     Active Substance: BUDESONIDE\FORMOTEROL FUMARATE DIHYDRATE
     Route: 055
  2. INFLECTRA [Suspect]
     Active Substance: INFLIXIMAB-DYYB
     Indication: Colitis ulcerative
     Route: 042
     Dates: start: 20220308

REACTIONS (13)
  - Pulmonary congestion [Unknown]
  - Pneumonia [Unknown]
  - Nasopharyngitis [Unknown]
  - Cough [Unknown]
  - Sputum discoloured [Unknown]
  - Oropharyngeal pain [Unknown]
  - Nausea [Unknown]
  - Diarrhoea [Unknown]
  - Burning sensation [Unknown]
  - Gastroenteritis [Unknown]
  - Nasopharyngitis [Unknown]
  - Influenza [Unknown]
  - Drug ineffective [Unknown]
